FAERS Safety Report 25570851 (Version 1)
Quarter: 2025Q3

REPORT INFORMATION
  Report Type: Spontaneous
  Country: EU (occurrence: EU)
  Receive Date: 20250717
  Receipt Date: 20250717
  Transmission Date: 20251020
  Serious: Yes (Other)
  Sender: EXELA PHARMA SCIENCES
  Company Number: EU-EXELAPHARMA-2025EXLA00123

PATIENT
  Age: 37 Year
  Sex: Female

DRUGS (4)
  1. TRANEXAMIC ACID [Suspect]
     Active Substance: TRANEXAMIC ACID
     Indication: Hereditary angioedema
  2. TRANEXAMIC ACID [Suspect]
     Active Substance: TRANEXAMIC ACID
     Indication: Prophylaxis
  3. IV pdC1-INH [Concomitant]
     Route: 042
  4. SC pdC1-INH [Concomitant]
     Route: 058

REACTIONS (1)
  - Drug ineffective for unapproved indication [Unknown]
